FAERS Safety Report 7921511-8 (Version None)
Quarter: 2011Q4

REPORT INFORMATION
  Report Type: 
  Country: None (occurrence: None)
  Receive Date: 20111117
  Receipt Date: 20110317
  Transmission Date: 20120403
  Serious: No
  Sender: FDA-Public Use
  Company Number: US-MYLANLABS-2011S1005640

PATIENT
  Age: 89 Year
  Sex: Female

DRUGS (5)
  1. TRIAMTERENE AND HYDROCHLOROTHIAZIDE [Suspect]
     Indication: OEDEMA
     Route: 048
     Dates: start: 20110220, end: 20110301
  2. TRIAMTERENE AND HYDROCHLOROTHIAZIDE [Suspect]
     Route: 048
     Dates: start: 20110220, end: 20110301
  3. WARFARIN SODIUM [Concomitant]
     Indication: PHLEBITIS
  4. TRIAMTERENE AND HYDROCHLOROTHIAZIDE [Suspect]
     Route: 048
     Dates: start: 20110220, end: 20110301
  5. TRIAMTERENE AND HYDROCHLOROTHIAZIDE [Suspect]
     Indication: BLOOD PRESSURE INCREASED
     Route: 048
     Dates: start: 20110220, end: 20110301

REACTIONS (4)
  - BLOOD PRESSURE DECREASED [None]
  - PAIN [None]
  - POLLAKIURIA [None]
  - DIZZINESS [None]
